FAERS Safety Report 6584605-8 (Version None)
Quarter: 2010Q1

REPORT INFORMATION
  Report Type: 
  Country: None (occurrence: None)
  Receive Date: 20100213
  Receipt Date: 20100213
  Transmission Date: 20100710
  Serious: No
  Sender: FDA-Public Use
  Company Number: None

PATIENT
  Sex: Female
  Weight: 61 kg

DRUGS (2)
  1. RITUXIMAB [Suspect]
     Indication: WALDENSTROM'S MACROGLOBULINAEMIA
     Dosage: 608 MG 50 MG/HR WEEKLY X 4 DOSES IV (FROM 1108-1120) 1208-1210
     Route: 042
     Dates: start: 20100209
  2. RITUXIMAB [Suspect]
     Indication: WALDENSTROM'S MACROGLOBULINAEMIA
     Dosage: 608 MG 50 MG/HR WEEKLY X 4 DOSES IV (FROM 1108-1120) 1208-1210
     Route: 042
     Dates: start: 20100209

REACTIONS (5)
  - CHILLS [None]
  - CLONIC CONVULSION [None]
  - FEELING ABNORMAL [None]
  - FEELING COLD [None]
  - INFUSION RELATED REACTION [None]
